FAERS Safety Report 25627946 (Version 1)
Quarter: 2025Q3

REPORT INFORMATION
  Report Type: Report from Study
  Country: CN (occurrence: CN)
  Receive Date: 20250731
  Receipt Date: 20250731
  Transmission Date: 20251020
  Serious: Yes (Other)
  Sender: VERITY PHARMACEUTICALS INC.
  Company Number: CN-VER-202500021

PATIENT

DRUGS (1)
  1. TRIPTORELIN [Suspect]
     Active Substance: TRIPTORELIN
     Indication: Infertility
     Route: 065

REACTIONS (13)
  - Abdominal pain [Unknown]
  - Alanine aminotransferase increased [Unknown]
  - Aspartate aminotransferase increased [Unknown]
  - Dermatitis allergic [Unknown]
  - Electrocardiogram QT prolonged [Unknown]
  - Electrocardiogram T wave abnormal [Unknown]
  - Glutamate dehydrogenase increased [Unknown]
  - Heart rate decreased [Unknown]
  - Neutrophil count decreased [Unknown]
  - Upper respiratory tract infection [Unknown]
  - White blood cells urine positive [Unknown]
  - Uterine haemorrhage [Unknown]
  - White blood cells urine positive [Unknown]
